FAERS Safety Report 17201533 (Version 1)
Quarter: 2019Q4

REPORT INFORMATION
  Report Type: Spontaneous
  Country: CA (occurrence: CA)
  Receive Date: 20191221
  Receipt Date: 20191221
  Transmission Date: 20200122
  Serious: Yes (Other)
  Sender: FDA-Public Use
  Company Number: None

PATIENT
  Age: 45 Year
  Sex: Male
  Weight: 60.75 kg

DRUGS (1)
  1. UDREAM [Suspect]
     Active Substance: HERBALS
     Indication: SLEEP DISORDER

REACTIONS (2)
  - Mental disorder [None]
  - Emotional disorder [None]

NARRATIVE: CASE EVENT DATE: 20191115
